FAERS Safety Report 16679427 (Version 1)
Quarter: 2019Q3

REPORT INFORMATION
  Report Type: Spontaneous
  Country: US (occurrence: US)
  Receive Date: 20190807
  Receipt Date: 20190807
  Transmission Date: 20191004
  Serious: Yes (Hospitalization)
  Sender: FDA-Public Use
  Company Number: US-PARATEK PHARMACEUTICALS, INC.-2019PTK00059

PATIENT
  Age: 45 Year
  Sex: Male

DRUGS (2)
  1. NUZYRA [Suspect]
     Active Substance: OMADACYCLINE
     Indication: CELLULITIS
  2. NUZYRA [Suspect]
     Active Substance: OMADACYCLINE
     Indication: PNEUMONIA
     Dosage: 150 MG, 2X/DAY
     Route: 048
     Dates: start: 20190725

REACTIONS (3)
  - Hospitalisation [Unknown]
  - Off label use [Recovered/Resolved]
  - Drug dose titration not performed [Recovered/Resolved]

NARRATIVE: CASE EVENT DATE: 201907
